FAERS Safety Report 16909513 (Version 3)
Quarter: 2021Q1

REPORT INFORMATION
  Report Type: Report from Study
  Country: AU (occurrence: AU)
  Receive Date: 20191011
  Receipt Date: 20210121
  Transmission Date: 20210419
  Serious: Yes (Hospitalization, Other)
  Sender: FDA-Public Use
  Company Number: AU-TOLMAR, INC.-19AU000493

PATIENT
  Sex: Male

DRUGS (1)
  1. ELIGARD [Suspect]
     Active Substance: LEUPROLIDE ACETATE
     Indication: PROSTATE CANCER
     Dosage: 22.5 MG, Q 3 MONTH
     Route: 058

REACTIONS (5)
  - Gastroenteritis [Recovered/Resolved]
  - Dyspnoea exertional [Not Recovered/Not Resolved]
  - Viral infection [Unknown]
  - Prostate cancer metastatic [Not Recovered/Not Resolved]
  - Prostatic specific antigen increased [Unknown]
